FAERS Safety Report 16864506 (Version 4)
Quarter: 2020Q2

REPORT INFORMATION
  Report Type: Report from Study
  Country: None (occurrence: DE)
  Receive Date: 20190928
  Receipt Date: 20200604
  Transmission Date: 20200713
  Serious: Yes (Life-Threatening, Hospitalization, Other)
  Sender: FDA-Public Use
  Company Number: DE-ABBVIE-19K-062-2943339-00

PATIENT
  Age: 57 Year
  Sex: Female

DRUGS (10)
  1. HUMIRA [Suspect]
     Active Substance: ADALIMUMAB
     Indication: PSORIATIC ARTHROPATHY
  2. INSULIN [Concomitant]
     Active Substance: INSULIN NOS
     Indication: PRODUCT USED FOR UNKNOWN INDICATION
  3. ESOMEPRAZOLE. [Concomitant]
     Active Substance: ESOMEPRAZOLE MAGNESIUM
     Indication: PRODUCT USED FOR UNKNOWN INDICATION
  4. CITALOPRAM [Concomitant]
     Active Substance: CITALOPRAM HYDROBROMIDE
     Indication: PRODUCT USED FOR UNKNOWN INDICATION
  5. LEVOTHYROXIN [Concomitant]
     Active Substance: LEVOTHYROXINE
     Indication: PRODUCT USED FOR UNKNOWN INDICATION
  6. TIOTROPIUM [Concomitant]
     Active Substance: TIOTROPIUM
     Indication: PRODUCT USED FOR UNKNOWN INDICATION
  7. OLODATEROL [Concomitant]
     Active Substance: OLODATEROL
     Indication: PRODUCT USED FOR UNKNOWN INDICATION
  8. HUMIRA [Suspect]
     Active Substance: ADALIMUMAB
     Indication: PSORIASIS
     Route: 058
     Dates: start: 20170424, end: 20180206
  9. SITAGLIPTIN [Concomitant]
     Active Substance: SITAGLIPTIN
     Indication: PRODUCT USED FOR UNKNOWN INDICATION
  10. METOPROLOL. [Concomitant]
     Active Substance: METOPROLOL
     Indication: PRODUCT USED FOR UNKNOWN INDICATION

REACTIONS (19)
  - Intensive care unit acquired weakness [Recovered/Resolved]
  - Normochromic normocytic anaemia [Recovered/Resolved]
  - Dysphagia [Recovered/Resolved]
  - Pharyngeal haemorrhage [Recovered/Resolved]
  - Empyema [Unknown]
  - Multiple-drug resistance [Unknown]
  - Arterial haemorrhage [Recovered/Resolved]
  - Pleural effusion [Recovered/Resolved]
  - Post procedural complication [Recovered/Resolved with Sequelae]
  - Pneumonia [Recovered/Resolved]
  - Enterococcal infection [Recovered/Resolved]
  - Decubitus ulcer [Recovered/Resolved]
  - Mechanical ventilation [Recovered/Resolved with Sequelae]
  - Acute kidney injury [Recovered/Resolved]
  - Oral candidiasis [Recovered/Resolved]
  - Acute respiratory distress syndrome [Recovered/Resolved]
  - Atelectasis [Unknown]
  - Delirium [Recovered/Resolved]
  - Bacterial infection [Unknown]

NARRATIVE: CASE EVENT DATE: 201803
